FAERS Safety Report 9586434 (Version 3)
Quarter: 2014Q4

REPORT INFORMATION
  Report Type: Spontaneous
  Country: US (occurrence: US)
  Receive Date: 20131003
  Receipt Date: 20141003
  Transmission Date: 20150529
  Serious: Yes (Hospitalization, Other)
  Sender: FDA-Public Use
  Company Number: US-PFIZER INC-2013281818

PATIENT
  Age: 48 Year
  Sex: Male
  Weight: 72.56 kg

DRUGS (22)
  1. TRIAMCINOLONE [Concomitant]
     Active Substance: TRIAMCINOLONE
     Dosage: UNK (0.5% APPLY TO AFFECTED AREA)
  2. METANX [Concomitant]
     Active Substance: LEVOMEFOLATE CALCIUM\METHYLCOBALAMIN\PYRIDOXAL PHOSPHATE ANHYDROUS
     Dosage: CYANOCOBALAMIN-3 MG, FOLIC ACID-35 MG, PYRIDOXINE-2 MG (90.314 MG:TAKE 1 THREE TIMES A DAY)
  3. CLONAZEPAM. [Concomitant]
     Active Substance: CLONAZEPAM
     Dosage: UNK
  4. IBUPROFEN. [Concomitant]
     Active Substance: IBUPROFEN
     Dosage: 600 MG, 3X/DAY (TAKE 1)
  5. TRIAMCINOLONE [Concomitant]
     Active Substance: TRIAMCINOLONE
     Dosage: UNK (0.1% APPLY TO AFFECTED AREA)
  6. LYRICA [Suspect]
     Active Substance: PREGABALIN
     Indication: DIABETIC NEUROPATHY
     Dosage: 150 MG, 2X/DAY
     Route: 048
  7. GABAPENTIN. [Suspect]
     Active Substance: GABAPENTIN
     Indication: NEUROPATHY PERIPHERAL
     Dosage: 800 MG, 3X/DAY (ONE DAILY)
     Route: 048
  8. COLCRYS [Concomitant]
     Active Substance: COLCHICINE
     Dosage: 0.6 MG, 2X/DAY (TAKE 1)
  9. AUGMENTIN [Concomitant]
     Active Substance: AMOXICILLIN\CLAVULANATE POTASSIUM
     Dosage: AMOXICILLIN TRIHYDRATE:875- CLAVULANATE POTASSIUM:125 MG TAKE 1)
  10. KEFLEX [Concomitant]
     Active Substance: CEPHALEXIN
     Dosage: 250 MG, 2X/DAY (TAKE 2)
  11. LYRICA [Suspect]
     Active Substance: PREGABALIN
     Dosage: UNK
  12. METFORMIN [Concomitant]
     Active Substance: METFORMIN HYDROCHLORIDE
     Indication: DIABETES MELLITUS
     Dosage: 1000 MG, 2X/DAY (TAKE 1)
  13. MELOXICAM. [Concomitant]
     Active Substance: MELOXICAM
     Dosage: 7.5 MG, 2X/DAY (TAKE 1)
  14. UREA. [Concomitant]
     Active Substance: UREA
     Dosage: UNK (40% LOTION APPLY TO AFFECTED AREA)
  15. VICODIN [Concomitant]
     Active Substance: ACETAMINOPHEN\HYDROCODONE BITARTRATE
     Indication: PAIN
     Dosage: HYDROCODONE BITARTRATE:5 MG-PARACETAMOL:500 MG (TAKE 1 EVERY 4-6 HOURS AS NEEDED)
  16. UREA. [Concomitant]
     Active Substance: UREA
     Dosage: UNK (40% APPLY TO AFFECTED AREA)
  17. BACTRIM DS [Concomitant]
     Active Substance: SULFAMETHOXAZOLE\TRIMETHOPRIM
     Dosage: SULFAMETHOXAZOLE:800MG-TRIMETHOPRIM:160 MG, TAKE 1)
  18. CICLOPIROX. [Concomitant]
     Active Substance: CICLOPIROX
     Dosage: UNK (0.77% APPLY TO AFFECTED AREA)
  19. CLINDAMYCIN HYDROCHLORIDE. [Concomitant]
     Active Substance: CLINDAMYCIN HYDROCHLORIDE
     Dosage: 300 MG, 4X/DAY (TAKE 1)
  20. KEFLEX [Concomitant]
     Active Substance: CEPHALEXIN
     Dosage: 500 MG, 3X/DAY (TAKE 1)
  21. MOBIC [Concomitant]
     Active Substance: MELOXICAM
     Dosage: 7.5 MG, 2X/DAY (TAKE1)
  22. TERBINAFINE HYDROCHLORIDE. [Concomitant]
     Active Substance: TERBINAFINE HYDROCHLORIDE
     Dosage: 250 MG, DAILY (TAKE 1)

REACTIONS (13)
  - Abdominal distension [Unknown]
  - Gait disturbance [Unknown]
  - Loss of consciousness [Unknown]
  - Bedridden [Unknown]
  - Dysstasia [Unknown]
  - Testicular abscess [Unknown]
  - Local swelling [Unknown]
  - Joint swelling [Unknown]
  - Insomnia [Unknown]
  - Bone disorder [Unknown]
  - Musculoskeletal disorder [Unknown]
  - Speech disorder [Unknown]
  - Drug ineffective for unapproved indication [Unknown]
